FAERS Safety Report 9153416 (Version 3)
Quarter: 2013Q2

REPORT INFORMATION
  Report Type: Spontaneous
  Country: JP (occurrence: JP)
  Receive Date: 20130311
  Receipt Date: 20130617
  Transmission Date: 20140414
  Serious: Yes (Hospitalization)
  Sender: FDA-Public Use
  Company Number: JP-SANOFI-AVENTIS-2013SA020671

PATIENT
  Age: 83 Year
  Sex: Female

DRUGS (3)
  1. PLAVIX [Suspect]
     Indication: CEREBRAL INFARCTION
     Route: 048
     Dates: start: 20130130, end: 20130227
  2. LIVALO [Suspect]
     Indication: DYSLIPIDAEMIA
     Route: 048
     Dates: start: 20130130, end: 20130227
  3. CRESTOR [Concomitant]
     Route: 065

REACTIONS (2)
  - Scleritis [Recovering/Resolving]
  - Ocular hyperaemia [Recovering/Resolving]
